FAERS Safety Report 8551622-8 (Version None)
Quarter: 2012Q3

REPORT INFORMATION
  Report Type: 
  Country: None (occurrence: None)
  Receive Date: 20120730
  Receipt Date: 20120720
  Transmission Date: 20120928
  Serious: Yes (Hospitalization, Other)
  Sender: FDA-Public Use
  Company Number: US-ASTRAZENECA-2012SE51794

PATIENT
  Age: 76 Year
  Sex: Male
  Weight: 90.7 kg

DRUGS (14)
  1. COUMADIN [Concomitant]
  2. INSULIN [Concomitant]
  3. GLIMEPIRIDE [Concomitant]
  4. LOVASTATIN [Concomitant]
  5. ONGLYZA [Suspect]
     Route: 048
  6. NEXIUM [Suspect]
     Route: 048
  7. LISINOPRIL [Suspect]
     Route: 048
  8. METOPROLOL TARTRATE [Suspect]
     Route: 048
  9. LASIX [Concomitant]
  10. NPH INSULIN [Concomitant]
     Route: 058
  11. TRICOR [Concomitant]
  12. JANUVIA [Concomitant]
  13. NPH INSULIN [Concomitant]
     Route: 058
  14. NPH INSULIN [Concomitant]
     Route: 058

REACTIONS (12)
  - ATRIAL FLUTTER [None]
  - BLOOD GLUCOSE INCREASED [None]
  - HYPERLIPIDAEMIA [None]
  - CHEST X-RAY ABNORMAL [None]
  - COAGULOPATHY [None]
  - DYSPEPSIA [None]
  - ROAD TRAFFIC ACCIDENT [None]
  - TYPE 2 DIABETES MELLITUS [None]
  - ARRHYTHMIA [None]
  - INTERSTITIAL LUNG DISEASE [None]
  - BRONCHITIS [None]
  - ANAEMIA [None]
